FAERS Safety Report 9840238 (Version 2)
Quarter: 2014Q1

REPORT INFORMATION
  Report Type: Spontaneous
  Country: BR (occurrence: BR)
  Receive Date: 20140124
  Receipt Date: 20140207
  Transmission Date: 20141002
  Serious: Yes (Other)
  Sender: FDA-Public Use
  Company Number: BR-VERTEX PHARMACEUTICALS INC-2014-000305

PATIENT
  Sex: Female
  Weight: 85 kg

DRUGS (5)
  1. INCIVO [Suspect]
     Indication: HEPATITIS C
     Dosage: UNK, BID
     Route: 065
     Dates: start: 20140115
  2. INTERFERON [Concomitant]
     Dosage: DOSAGE FORM: UNKNOWN
     Route: 065
     Dates: start: 2009
  3. RIBAVIRIN [Concomitant]
     Dosage: DOSAGE FORM: UNKNOWN
     Route: 065
  4. PREDNISONE [Concomitant]
     Dosage: 10 MG, UNK
  5. ENALAPRIL [Concomitant]
     Indication: HYPERTENSION
     Dosage: DOSAGE FORM: UNKNOWN
     Route: 065

REACTIONS (8)
  - Depression [Unknown]
  - Fear [Unknown]
  - Muscle spasms [Not Recovered/Not Resolved]
  - Aphagia [Not Recovered/Not Resolved]
  - Decreased appetite [Unknown]
  - Weight decreased [Not Recovered/Not Resolved]
  - Vomiting [Unknown]
  - Nausea [Not Recovered/Not Resolved]
